FAERS Safety Report 6603049-3 (Version None)
Quarter: 2010Q1

REPORT INFORMATION
  Report Type: 
  Country: None (occurrence: None)
  Receive Date: 20100226
  Receipt Date: 20100216
  Transmission Date: 20100710
  Serious: Yes (Hospitalization, Other)
  Sender: FDA-Public Use
  Company Number: PHHY2010US02464

PATIENT
  Sex: Female

DRUGS (3)
  1. GLEEVEC [Suspect]
     Indication: GASTRIC SARCOMA
     Dosage: 200 MG DAILY (HALF TABLET)
     Route: 048
  2. GLEEVEC [Suspect]
     Dosage: 400 MG DAILY (ONE PILL DAILY)
     Route: 048
     Dates: start: 20091201
  3. GLEEVEC [Suspect]
     Dosage: 200 MG DAILY (HALF PILL)
     Route: 048
     Dates: start: 20091217

REACTIONS (10)
  - ERYTHEMA [None]
  - INFLAMMATION [None]
  - OEDEMA PERIPHERAL [None]
  - PRURITUS [None]
  - RASH GENERALISED [None]
  - RASH MACULAR [None]
  - SCIATICA [None]
  - SPEECH DISORDER [None]
  - SWELLING FACE [None]
  - SWOLLEN TONGUE [None]
